FAERS Safety Report 8520834-1 (Version None)
Quarter: 2012Q3

REPORT INFORMATION
  Report Type: 
  Country: None (occurrence: None)
  Receive Date: 20120719
  Receipt Date: 20120716
  Transmission Date: 20120928
  Serious: Yes (Hospitalization)
  Sender: FDA-Public Use
  Company Number: FR-PFIZER INC-2012048887

PATIENT
  Age: 87 Year
  Sex: Female

DRUGS (7)
  1. CACIT [Concomitant]
     Dosage: UNK
     Dates: start: 20111013
  2. IMOVANE [Concomitant]
     Dosage: UNK
     Dates: start: 20111013
  3. AMLODIPINE BESYLATE [Suspect]
     Dosage: UNK
     Dates: start: 20110901, end: 20120126
  4. COUMADIN [Suspect]
     Dosage: 2 MG, UNK
     Route: 048
     Dates: start: 20050101
  5. ATHYMIL [Concomitant]
     Dosage: UNK
     Dates: start: 20111013
  6. VITAMIN D [Concomitant]
     Dosage: UNK
     Dates: start: 20111013
  7. PARACETAMOL [Concomitant]
     Dosage: UNK
     Dates: start: 20111013

REACTIONS (4)
  - GASTROINTESTINAL HAEMORRHAGE [None]
  - VASCULAR PURPURA [None]
  - CARDIAC FAILURE [None]
  - NECROSIS [None]
